FAERS Safety Report 7512140-9 (Version None)
Quarter: 2011Q2

REPORT INFORMATION
  Report Type: 
  Country: None (occurrence: None)
  Receive Date: 20110519
  Receipt Date: 20110509
  Transmission Date: 20111010
  Serious: Yes (Other)
  Sender: FDA-Public Use
  Company Number: TH-ACCORD-009135

PATIENT
  Age: 50 Year
  Sex: Female

DRUGS (1)
  1. SIMVASTATIN [Suspect]
     Indication: HYPERCHOLESTEROLAEMIA
     Dosage: 20.00 MG-1.0 DAYS
     Dates: start: 20070101

REACTIONS (4)
  - MYASTHENIA GRAVIS [None]
  - DYSPHAGIA [None]
  - CONDITION AGGRAVATED [None]
  - SPEECH DISORDER [None]
